FAERS Safety Report 9064476 (Version 15)
Quarter: 2014Q3

REPORT INFORMATION
  Report Type: Report from Study
  Country: US (occurrence: US)
  Receive Date: 20130130
  Receipt Date: 20140721
  Transmission Date: 20150326
  Serious: Yes (Life-Threatening, Hospitalization, Disabling, Other)
  Sender: FDA-Public Use
  Company Number: US-ACTELION-A-US2013-78259

PATIENT
  Age: 68 Year
  Sex: Female

DRUGS (4)
  1. TRACLEER [Suspect]
     Active Substance: BOSENTAN\BOSENTAN MONOHYDRATE
     Indication: PULMONARY HYPERTENSION
     Dosage: 125 MG, BID
     Route: 048
     Dates: end: 20140528
  2. OXYGEN. [Concomitant]
     Active Substance: OXYGEN
     Dosage: UNK 6 LITERS
  3. SILDENAFIL [Concomitant]
     Active Substance: SILDENAFIL
  4. TRACLEER [Suspect]
     Active Substance: BOSENTAN\BOSENTAN MONOHYDRATE
     Dosage: UNK
     Route: 048

REACTIONS (13)
  - Hypertension [Unknown]
  - Dizziness [Unknown]
  - Heart rate increased [Unknown]
  - Respiratory failure [Not Recovered/Not Resolved]
  - Headache [Unknown]
  - Oxygen saturation decreased [Unknown]
  - Pneumonia [Unknown]
  - Pain [Unknown]
  - Dyspnoea [Unknown]
  - Pulmonary arterial hypertension [Unknown]
  - Chronic obstructive pulmonary disease [Not Recovered/Not Resolved]
  - Respiratory tract congestion [Not Recovered/Not Resolved]
  - Cough [Unknown]

NARRATIVE: CASE EVENT DATE: 20140317
